FAERS Safety Report 7647452-1 (Version None)
Quarter: 2011Q3

REPORT INFORMATION
  Report Type: 
  Country: None (occurrence: None)
  Receive Date: 20110801
  Receipt Date: 20110719
  Transmission Date: 20111222
  Serious: Yes (Other)
  Sender: FDA-Public Use
  Company Number: US-UCBSA-016538

PATIENT
  Age: 31 Year
  Sex: Female

DRUGS (4)
  1. PROMETRIUM [Concomitant]
     Indication: PROGESTERONE DECREASED
     Route: 048
     Dates: start: 20090311, end: 20091212
  2. TERBUTALINE [Concomitant]
     Indication: PREMATURE LABOUR
     Dosage: 2.5MG Q4
     Route: 048
     Dates: start: 20100524, end: 20100622
  3. KEPPRA [Suspect]
     Indication: EPILEPSY
     Route: 048
     Dates: start: 20061001
  4. FOLIC ACID [Concomitant]
     Indication: PREGNANCY
     Route: 048
     Dates: end: 20100622

REACTIONS (3)
  - PREMATURE LABOUR [None]
  - PROGESTERONE DECREASED [None]
  - PREGNANCY [None]
